FAERS Safety Report 5107795-2 (Version None)
Quarter: 2006Q3

REPORT INFORMATION
  Report Type: 
  Country: None (occurrence: None)
  Receive Date: 20060914
  Receipt Date: 20060905
  Transmission Date: 20061208
  Serious: Yes (Hospitalization)
  Sender: FDA-Public Use
  Company Number: FR-2006-025647

PATIENT
  Age: 19 Year
  Sex: Female

DRUGS (2)
  1. JASMINE (DROSPIRENONE, ETHINYLESTRADIOL)FILM TABLET [Suspect]
     Indication: ORAL CONTRACEPTION
     Dosage: 1 DF, 1X/DAY, ORAL
     Route: 048
  2. IBUPROFEN [Suspect]
     Indication: VIRAL INFECTION

REACTIONS (8)
  - ASTHENIA [None]
  - EOSINOPHILIA [None]
  - MYALGIA [None]
  - NEUTROPENIA [None]
  - PYREXIA [None]
  - SERUM FERRITIN DECREASED [None]
  - THROMBOCYTHAEMIA [None]
  - VIRAL INFECTION [None]
